FAERS Safety Report 4336757-8 (Version None)
Quarter: 2004Q2

REPORT INFORMATION
  Report Type: 
  Country: None (occurrence: None)
  Receive Date: 20040408
  Receipt Date: 20040325
  Transmission Date: 20050107
  Serious: Yes (Hospitalization)
  Sender: FDA-Public Use
  Company Number: US-JNJFOC-20040400203

PATIENT
  Age: 48 Year
  Sex: Female

DRUGS (5)
  1. TYLENOL 4 (ACETAMINOPHEN/CODEINE) UNSPECIFIED [Suspect]
     Indication: DRUG USE FOR UNKNOWN INDICATION
     Dosage: 6 TABLETS
  2. ALEVE [Suspect]
     Indication: DRUG USE FOR UNKNOWN INDICATION
     Dosage: 13200 MG, ORAL
     Route: 048
     Dates: start: 20040324, end: 20040325
  3. OTC SLEEPING PILLS (ALL OTHER THERAPEUTIC PRODUCTS) [Suspect]
  4. PAIN PILLS (ANALGESICS) [Suspect]
     Dosage: 10 PILLS
  5. VODKA (ETHANOL) [Suspect]
     Dosage: 1/3 OF A FIFTH OF VODKA

REACTIONS (4)
  - DEPRESSION [None]
  - DRUG SCREEN POSITIVE [None]
  - DYSPEPSIA [None]
  - MULTIPLE DRUG OVERDOSE [None]
